FAERS Safety Report 4777334-4 (Version None)
Quarter: 2005Q3

REPORT INFORMATION
  Report Type: 
  Country: None (occurrence: None)
  Receive Date: 20050915
  Receipt Date: 20050902
  Transmission Date: 20060218
  Serious: Yes (Life-Threatening)
  Sender: FDA-Public Use
  Company Number: LNL-100152-NL

PATIENT
  Age: 73 Year
  Sex: Male

DRUGS (1)
  1. ROCURONIUM BROMIDE [Suspect]
     Dates: start: 20000427

REACTIONS (3)
  - AMNESIA [None]
  - HYPOTENSION [None]
  - SYNCOPE [None]
